FAERS Safety Report 15363172 (Version 1)
Quarter: 2018Q3

REPORT INFORMATION
  Report Type: Spontaneous
  Country: US (occurrence: US)
  Receive Date: 20180831
  Receipt Date: 20180831
  Transmission Date: 20181010
  Serious: No
  Sender: FDA-Public Use
  Company Number: None

PATIENT
  Age: 59 Year
  Sex: Female

DRUGS (1)
  1. SIROLIMUS TAB 1MG [Suspect]
     Active Substance: SIROLIMUS
     Indication: PROPHYLAXIS AGAINST TRANSPLANT REJECTION
     Route: 048
     Dates: start: 200908

REACTIONS (4)
  - Headache [None]
  - Laceration [None]
  - Insomnia [None]
  - Contusion [None]

NARRATIVE: CASE EVENT DATE: 20180831
